FAERS Safety Report 18584168 (Version 1)
Quarter: 2020Q4

REPORT INFORMATION
  Report Type: Spontaneous
  Country: FR (occurrence: FR)
  Receive Date: 20201207
  Receipt Date: 20201207
  Transmission Date: 20210114
  Serious: Yes (Hospitalization)
  Sender: FDA-Public Use
  Company Number: FR-TEVA-2020-FR-1854644

PATIENT
  Age: 45 Year
  Sex: Male
  Weight: 95 kg

DRUGS (14)
  1. KETOPROFENE [Suspect]
     Active Substance: KETOPROFEN
     Indication: RENAL COLIC
     Dosage: 100MILLIGRAM
     Route: 065
     Dates: start: 20171101
  2. CARDENSIEL [Concomitant]
     Active Substance: BISOPROLOL FUMARATE
  3. SPASFON (PHLOROGLUCINOL/TRIMETHYLPHLOROGLUCINOL) [Suspect]
     Active Substance: PHLOROGLUCINOL\1,3,5-TRIMETHOXYBENZENE
     Indication: RENAL COLIC
     Route: 048
     Dates: start: 20171101
  4. TOPALGIC (TRAMADOL HYDROCHLORIDE) [Suspect]
     Active Substance: TRAMADOL HYDROCHLORIDE
     Indication: RENAL COLIC
     Route: 048
     Dates: start: 20171101
  5. OMEPRAZOLE. [Concomitant]
     Active Substance: OMEPRAZOLE
  6. ADANCOR [Concomitant]
     Active Substance: NICORANDIL
  7. PLAVIX [Concomitant]
     Active Substance: CLOPIDOGREL BISULFATE
  8. TAMSULOSINE [Concomitant]
     Active Substance: TAMSULOSIN HYDROCHLORIDE
  9. EZETROL [Concomitant]
     Active Substance: EZETIMIBE
  10. MORPHINE [Suspect]
     Active Substance: MORPHINE
     Indication: RENAL COLIC
     Route: 048
     Dates: start: 20171101
  11. ACUPAN [Suspect]
     Active Substance: NEFOPAM HYDROCHLORIDE
     Indication: RENAL COLIC
     Route: 065
     Dates: start: 20171101
  12. DAFALGAN [Suspect]
     Active Substance: ACETAMINOPHEN
     Indication: RENAL COLIC
     Route: 048
     Dates: start: 20171101
  13. RAMIPRIL. [Concomitant]
     Active Substance: RAMIPRIL
  14. TAHOR [Concomitant]
     Active Substance: ATORVASTATIN CALCIUM

REACTIONS (1)
  - Acute kidney injury [Recovered/Resolved]

NARRATIVE: CASE EVENT DATE: 20171103
